FAERS Safety Report 15032299 (Version 1)
Quarter: 2018Q2

REPORT INFORMATION
  Report Type: Spontaneous
  Country: ES (occurrence: ES)
  Receive Date: 20180619
  Receipt Date: 20180619
  Transmission Date: 20180711
  Serious: Yes (Hospitalization, Other)
  Sender: FDA-Public Use
  Company Number: ES-009507513-1806ESP003768

PATIENT
  Age: 35 Year
  Sex: Female
  Weight: 54 kg

DRUGS (3)
  1. ESMERON [Suspect]
     Active Substance: ROCURONIUM BROMIDE
     Indication: INDUCTION OF ANAESTHESIA
     Dosage: 30 MG, ONCE
     Dates: start: 20180314, end: 20180314
  2. PROPOFOL. [Suspect]
     Active Substance: PROPOFOL
     Indication: INDUCTION OF ANAESTHESIA
     Dosage: UNK
     Dates: start: 20180314, end: 20180314
  3. FENTANYL. [Suspect]
     Active Substance: FENTANYL
     Indication: INDUCTION OF ANAESTHESIA
     Dosage: UNK
     Dates: start: 20180314, end: 20180314

REACTIONS (3)
  - Neuromuscular block prolonged [Recovered/Resolved]
  - Breast feeding [Unknown]
  - Myasthenic syndrome [Unknown]

NARRATIVE: CASE EVENT DATE: 20180314
